FAERS Safety Report 17372642 (Version 3)
Quarter: 2020Q1

REPORT INFORMATION
  Report Type: Spontaneous
  Country: US (occurrence: US)
  Receive Date: 20200205
  Receipt Date: 20200319
  Transmission Date: 20200409
  Serious: Yes (Hospitalization)
  Sender: FDA-Public Use
  Company Number: US-PFIZER INC-2019526506

PATIENT
  Age: 69 Year
  Sex: Male
  Weight: 102.4 kg

DRUGS (2)
  1. CHANTIX [Suspect]
     Active Substance: VARENICLINE TARTRATE
     Dosage: UNK
  2. CHANTIX [Suspect]
     Active Substance: VARENICLINE TARTRATE
     Dosage: UNK

REACTIONS (3)
  - Muscle spasms [Not Recovered/Not Resolved]
  - Chest pain [Not Recovered/Not Resolved]
  - Dyspnoea [Not Recovered/Not Resolved]

NARRATIVE: CASE EVENT DATE: 20200113
